FAERS Safety Report 7509447-8 (Version None)
Quarter: 2011Q2

REPORT INFORMATION
  Report Type: 
  Country: None (occurrence: None)
  Receive Date: 20110527
  Receipt Date: 20110516
  Transmission Date: 20111010
  Serious: Yes (Other)
  Sender: FDA-Public Use
  Company Number: BR-ROCHE-775443

PATIENT
  Sex: Female

DRUGS (2)
  1. ISOTRETINOIN [Suspect]
     Dosage: FREQUENCY: 40 MG PER DAY
     Route: 048
     Dates: start: 20110101, end: 20110503
  2. ISOTRETINOIN [Suspect]
     Indication: ACNE
     Dosage: THERAPY DURATION: 9 MONTHS (APPROXIMATE)
     Route: 048
     Dates: start: 20080101, end: 20080101

REACTIONS (2)
  - ABORTION SPONTANEOUS [None]
  - DRUG EXPOSURE DURING PREGNANCY [None]
